FAERS Safety Report 10482763 (Version 1)
Quarter: 2014Q3

REPORT INFORMATION
  Report Type: Spontaneous
  Country: DK (occurrence: FR)
  Receive Date: 20140929
  Receipt Date: 20140929
  Transmission Date: 20150326
  Serious: Yes (Hospitalization)
  Sender: FDA-Public Use
  Company Number: FR-FRI-1000071035

PATIENT
  Age: 79 Year
  Sex: Male

DRUGS (10)
  1. PREVISCAN [Suspect]
     Active Substance: FLUINDIONE
     Route: 048
     Dates: end: 20140802
  2. COAPROVEL (HYDROCHLOROTHIAZIDE AND IRBESARTAN) [Concomitant]
     Dosage: 300 / 25 MG
     Dates: end: 20140729
  3. COLCHIMAX [Suspect]
     Active Substance: COLCHICINE\DICYCLOMINE HYDROCHLORIDE
     Indication: CRYSTAL ARTHROPATHY
     Route: 048
     Dates: start: 20140704, end: 20140729
  4. NOCTAMIDE [Concomitant]
     Active Substance: LORMETAZEPAM
     Dosage: 2 MG
  5. ALLOPURINOL. [Suspect]
     Active Substance: ALLOPURINOL
     Indication: CRYSTAL ARTHROPATHY
     Route: 048
     Dates: start: 20140704, end: 20140729
  6. CELIPROLOL [Concomitant]
     Active Substance: CELIPROLOL
     Dosage: 200 MG
  7. FUROSEMIDE. [Concomitant]
     Active Substance: FUROSEMIDE
     Dosage: 20 MG
     Dates: end: 20140729
  8. ESCITALOPRAM [Suspect]
     Active Substance: ESCITALOPRAM OXALATE
     Dosage: 10 MG
     Route: 048
     Dates: start: 20140705, end: 20140721
  9. GLUCOPHAGE [Concomitant]
     Active Substance: METFORMIN HYDROCHLORIDE
     Dosage: 500 MG
     Dates: end: 20140729
  10. TAHOR [Concomitant]
     Active Substance: ATORVASTATIN CALCIUM
     Dosage: 10 MG

REACTIONS (4)
  - Drug reaction with eosinophilia and systemic symptoms [Recovering/Resolving]
  - International normalised ratio increased [Recovered/Resolved]
  - Renal failure acute [Recovered/Resolved]
  - Cholestasis [Recovered/Resolved]

NARRATIVE: CASE EVENT DATE: 20140724
